FAERS Safety Report 5201779-1 (Version None)
Quarter: 2007Q1

REPORT INFORMATION
  Report Type: 
  Country: None (occurrence: None)
  Receive Date: 20070104
  Receipt Date: 20061227
  Transmission Date: 20070707
  Serious: Yes (Other)
  Sender: FDA-Public Use
  Company Number: 06H-087-0311608-00

PATIENT
  Age: 22 Year
  Sex: Male
  Weight: 45 kg

DRUGS (6)
  1. PRECEDEX [Suspect]
     Indication: GENERAL ANAESTHESIA
     Dosage: INTRAVENOUS
     Route: 042
  2. NITROUS OXIDE (NITROUS OXIDE) [Concomitant]
  3. SEVOFLURANE [Concomitant]
  4. MIDAZOLAM HCL [Concomitant]
  5. BUTORPHANOL TARATRATE [Concomitant]
  6. OXYGEN (OXYGEN) [Concomitant]

REACTIONS (1)
  - ATELECTASIS [None]
